FAERS Safety Report 8309732-6 (Version None)
Quarter: 2012Q2

REPORT INFORMATION
  Report Type: 
  Country: None (occurrence: None)
  Receive Date: 20120425
  Receipt Date: 20120417
  Transmission Date: 20120825
  Serious: Yes (Death)
  Sender: FDA-Public Use
  Company Number: US-BAYER-2012-038627

PATIENT
  Age: 24 Year
  Sex: Female

DRUGS (10)
  1. YASMIN [Suspect]
  2. IBUPROFEN [Concomitant]
     Dosage: 800 MG, UNK
     Dates: start: 20100211
  3. GLUCAGON [Concomitant]
  4. YAZ [Suspect]
  5. ALPRAZOLAM [Concomitant]
     Dosage: 0.5 MG, UNK
     Dates: start: 20100211
  6. LISINOPRIL [Concomitant]
     Dosage: 5 MG, UNK
  7. CONCERTA [Concomitant]
     Dosage: 36 MG, BID
  8. AMIODARONE HCL [Concomitant]
     Dosage: 200 MG, UNK
  9. LANTUS [Concomitant]
  10. NOVOLOG [Concomitant]

REACTIONS (1)
  - CARDIO-RESPIRATORY ARREST [None]
